FAERS Safety Report 26110720 (Version 1)
Quarter: 2025Q4

REPORT INFORMATION
  Report Type: Spontaneous
  Country: US (occurrence: US)
  Receive Date: 20251202
  Receipt Date: 20251202
  Transmission Date: 20260117
  Serious: No
  Sender: LUPIN
  Company Number: US-LUPIN PHARMACEUTICALS INC.-2025-10691

PATIENT
  Age: 77 Year
  Weight: 81.633 kg

DRUGS (1)
  1. BROMFENAC [Suspect]
     Active Substance: BROMFENAC
     Indication: Macular oedema
     Dosage: BID

REACTIONS (2)
  - Overdose [Unknown]
  - Product design issue [Unknown]
